FAERS Safety Report 22355986 (Version 1)
Quarter: 2023Q2

REPORT INFORMATION
  Report Type: Report from Study
  Country: US (occurrence: US)
  Receive Date: 20230523
  Receipt Date: 20230523
  Transmission Date: 20230722
  Serious: Yes (Hospitalization)
  Sender: FDA-Public Use
  Company Number: US-JNJFOC-20230551398

PATIENT
  Sex: Female

DRUGS (1)
  1. SPRAVATO [Suspect]
     Active Substance: ESKETAMINE
     Indication: Product used for unknown indication
     Dates: start: 20230307, end: 20230511

REACTIONS (4)
  - Kidney infection [Unknown]
  - Stress [Not Recovered/Not Resolved]
  - Urticaria [Unknown]
  - Immune system disorder [Unknown]

NARRATIVE: CASE EVENT DATE: 20230101
